FAERS Safety Report 8623504-4 (Version None)
Quarter: 2012Q3

REPORT INFORMATION
  Report Type: 
  Country: None (occurrence: None)
  Receive Date: 20120824
  Receipt Date: 20120824
  Transmission Date: 20120928
  Serious: No
  Sender: FDA-Public Use
  Company Number: None

PATIENT
  Sex: Female
  Weight: 56.246 kg

DRUGS (1)
  1. RAPAFLO [Suspect]
     Indication: RENAL COLIC
     Dosage: 1 CAP QD

REACTIONS (5)
  - DISORIENTATION [None]
  - RASH PRURITIC [None]
  - INCOHERENT [None]
  - KETOSIS [None]
  - RASH MORBILLIFORM [None]
